FAERS Safety Report 5060123-3 (Version None)
Quarter: 2006Q3

REPORT INFORMATION
  Report Type: 
  Country: None (occurrence: None)
  Receive Date: 20060719
  Receipt Date: 20060707
  Transmission Date: 20061208
  Serious: Yes (Hospitalization)
  Sender: FDA-Public Use
  Company Number: LTI2006A00164

PATIENT
  Age: 72 Year
  Sex: Female

DRUGS (9)
  1. OGAST 30 MG (LANSOPRAZOLE) (CAPSULES) [Suspect]
     Dosage: 30 MG (30 MG, 1 IN 1 D)
     Dates: end: 20060411
  2. LORAZEPAM [Suspect]
     Indication: ANXIETY
     Dosage: 1 MG, 1 IN 1 D)
     Dates: end: 20060411
  3. ALGOTROPYL PROMETHAZINE (MEDISED) [Suspect]
     Indication: BRONCHITIS
     Dosage: 2 DF (1 DF, 2 IN 1 D)
     Dates: end: 20060411
  4. PRAZEPAM [Suspect]
     Indication: ANXIETY
     Dosage: 10 MG (10 MG, 1 IN 1 D) ORAL
     Route: 048
     Dates: end: 20060411
  5. ALDALIX (OSYROL-LASIX) (CAPSULES) [Suspect]
     Indication: CARDIAC FAILURE CONGESTIVE
     Dosage: 50 MG (50 MG, 1 IN 1 D) ORAL
     Route: 048
     Dates: end: 20060411
  6. PREDNISONE [Suspect]
     Dosage: 40 MG (20 MG, 2 IN 1 D) ORAL; 10 MG (10 MG, 1 IN 1 D) ORAL
     Route: 048
     Dates: end: 20060411
  7. PREDNISONE [Suspect]
     Dosage: 40 MG (20 MG, 2 IN 1 D) ORAL; 10 MG (10 MG, 1 IN 1 D) ORAL
     Route: 048
     Dates: start: 20060315
  8. SERETIDE (SERETIDE) (INHALANT) [Concomitant]
  9. VENTOLIN [Concomitant]

REACTIONS (6)
  - BRONCHITIS [None]
  - CONFUSIONAL STATE [None]
  - DELIRIUM [None]
  - HALLUCINATION [None]
  - RESPIRATORY FAILURE [None]
  - URINARY RETENTION [None]
